FAERS Safety Report 6526396-2 (Version None)
Quarter: 2009Q4

REPORT INFORMATION
  Report Type: 
  Country: None (occurrence: None)
  Receive Date: 20091229
  Receipt Date: 20091217
  Transmission Date: 20100525
  Serious: Yes (Other)
  Sender: FDA-Public Use
  Company Number: 2009SP037435

PATIENT
  Age: 38 Year
  Sex: Female
  Weight: 81 kg

DRUGS (1)
  1. IMPLANON [Suspect]
     Indication: DRUG USE FOR UNKNOWN INDICATION
     Dosage: 1 DF;
     Dates: start: 20070626

REACTIONS (5)
  - ABORTION SPONTANEOUS [None]
  - DRUG EXPOSURE DURING PREGNANCY [None]
  - ECTOPIC PREGNANCY [None]
  - MUSCLE SPASMS [None]
  - PREGNANCY WITH IMPLANT CONTRACEPTIVE [None]
